FAERS Safety Report 13359598 (Version 1)
Quarter: 2017Q1

REPORT INFORMATION
  Report Type: Spontaneous
  Country: US (occurrence: US)
  Receive Date: 20170322
  Receipt Date: 20170322
  Transmission Date: 20170429
  Serious: No
  Sender: FDA-Public Use
  Company Number: US-PFIZER INC-2017120624

PATIENT
  Age: 45 Year
  Sex: Female
  Weight: 65 kg

DRUGS (1)
  1. SOLU-MEDROL [Suspect]
     Active Substance: METHYLPREDNISOLONE SODIUM SUCCINATE
     Indication: INTERVERTEBRAL DISC PROTRUSION
     Dosage: UNK
     Route: 042
     Dates: start: 201701

REACTIONS (4)
  - Drug ineffective for unapproved indication [Unknown]
  - Fluid retention [Unknown]
  - Weight increased [Unknown]
  - Discomfort [Unknown]

NARRATIVE: CASE EVENT DATE: 201701
